FAERS Safety Report 25432816 (Version 2)
Quarter: 2025Q2

REPORT INFORMATION
  Report Type: Spontaneous
  Country: US (occurrence: US)
  Receive Date: 20250613
  Receipt Date: 20250618
  Transmission Date: 20250717
  Serious: No
  Sender: ELI LILLY AND COMPANY
  Company Number: US-ELI_LILLY_AND_COMPANY-US202506010421

PATIENT
  Age: 70 Year
  Sex: Female

DRUGS (2)
  1. ZEPBOUND [Suspect]
     Active Substance: TIRZEPATIDE
     Indication: Weight control
     Route: 065
     Dates: start: 202505
  2. ZEPBOUND [Suspect]
     Active Substance: TIRZEPATIDE
     Route: 065
     Dates: start: 20250603

REACTIONS (5)
  - Hypertension [Not Recovered/Not Resolved]
  - Gastritis [Not Recovered/Not Resolved]
  - Flatulence [Unknown]
  - Nausea [Unknown]
  - Malaise [Unknown]

NARRATIVE: CASE EVENT DATE: 20250610
